FAERS Safety Report 12105343 (Version 2)
Quarter: 2016Q1

REPORT INFORMATION
  Report Type: Spontaneous
  Country: IT (occurrence: IT)
  Receive Date: 20160223
  Receipt Date: 20160303
  Transmission Date: 20160526
  Serious: Yes (Hospitalization)
  Sender: FDA-Public Use
  Company Number: IT-TEVA-635953ACC

PATIENT
  Age: 83 Year
  Sex: Male

DRUGS (2)
  1. GABAPENTIN TEVA PHARMA - 400 MG CAPSULE RIGIDE - TEVA PHARMA B.V. [Suspect]
     Active Substance: GABAPENTIN
     Indication: PAIN
     Dosage: 1200 MILLIGRAM DAILY;
     Route: 048
     Dates: start: 20150501, end: 20150520
  2. TARGIN - 20 MG/10 MG COMPRESSE A RILASCIO PROLUNGATO [Suspect]
     Active Substance: NALOXONE HYDROCHLORIDE\OXYCODONE HYDROCHLORIDE
     Indication: PAIN
     Dosage: 40 MILLIGRAM DAILY;
     Route: 048
     Dates: start: 20141130, end: 20150520

REACTIONS (7)
  - Ataxia [Recovered/Resolved]
  - Hypokinesia [Recovered/Resolved]
  - Sopor [Recovered/Resolved]
  - Toxicity to various agents [Recovered/Resolved]
  - Dysphonia [Recovered/Resolved]
  - Bradyphrenia [Recovered/Resolved]
  - Hyperpyrexia [Unknown]

NARRATIVE: CASE EVENT DATE: 20150520
